FAERS Safety Report 18931398 (Version 2)
Quarter: 2021Q1

REPORT INFORMATION
  Report Type: Report from Study
  Country: CA (occurrence: CA)
  Receive Date: 20210224
  Receipt Date: 20210325
  Transmission Date: 20210420
  Serious: Yes (Other)
  Sender: FDA-Public Use
  Company Number: CA-SAMSUNG BIOEPIS-SB-2020-11328

PATIENT
  Age: 59 Year
  Sex: Male
  Weight: 114.6 kg

DRUGS (2)
  1. RENFLEXIS [Suspect]
     Active Substance: INFLIXIMAB-ABDA
     Indication: COLITIS ULCERATIVE
     Route: 042
     Dates: start: 20191230
  2. RENFLEXIS [Suspect]
     Active Substance: INFLIXIMAB-ABDA
     Indication: CROHN^S DISEASE
     Route: 042
     Dates: start: 20200528

REACTIONS (12)
  - Decreased appetite [Not Recovered/Not Resolved]
  - Malaise [Not Recovered/Not Resolved]
  - Rash erythematous [Not Recovered/Not Resolved]
  - Crohn^s disease [Recovering/Resolving]
  - Panic attack [Recovered/Resolved]
  - Erythema nodosum [Unknown]
  - Product use issue [Unknown]
  - Dyspnoea [Recovering/Resolving]
  - Colitis ulcerative [Recovering/Resolving]
  - Rash pruritic [Not Recovered/Not Resolved]
  - Nausea [Recovering/Resolving]
  - Anxiety [Unknown]

NARRATIVE: CASE EVENT DATE: 20210212
